FAERS Safety Report 4462596-3 (Version None)
Quarter: 2004Q3

REPORT INFORMATION
  Report Type: 
  Country: None (occurrence: None)
  Receive Date: 20040928
  Receipt Date: 20040913
  Transmission Date: 20050211
  Serious: Yes (Hospitalization)
  Sender: FDA-Public Use
  Company Number: 2004223045DE

PATIENT
  Age: 62 Year
  Sex: Male
  Weight: 72 kg

DRUGS (6)
  1. XALATAN [Suspect]
     Indication: GLAUCOMA
     Dosage: QD, OPHTHALMIC
     Route: 047
     Dates: start: 20040601
  2. BISOMERCK [Concomitant]
  3. LEVOTHYROXINE SODIUM [Concomitant]
  4. MARCUMAR [Concomitant]
  5. SIMVASTATIN [Concomitant]
  6. LISIHEXAL [Concomitant]

REACTIONS (4)
  - ANGINA PECTORIS [None]
  - ATRIAL FIBRILLATION [None]
  - BLOOD PRESSURE INCREASED [None]
  - TACHYARRHYTHMIA [None]
